FAERS Safety Report 5571218-X (Version None)
Quarter: 2007Q4

REPORT INFORMATION
  Report Type: 
  Country: None (occurrence: None)
  Receive Date: 20071221
  Receipt Date: 20070216
  Transmission Date: 20080405
  Serious: No
  Sender: FDA-Public Use
  Company Number: A0640034A

PATIENT
  Age: 55 Year

DRUGS (13)
  1. FLONASE [Suspect]
     Route: 045
     Dates: start: 20070215
  2. TARKA [Concomitant]
  3. DEMADEX [Concomitant]
  4. ESTRADIOL [Concomitant]
  5. CRESTOR [Concomitant]
  6. POTASSIUM CHLORIDE [Concomitant]
  7. GLUCOVANCE [Concomitant]
  8. XANAX [Concomitant]
  9. FLEXERIL [Concomitant]
  10. M.V.I. [Concomitant]
  11. VITAMIN B-12 [Concomitant]
  12. CIPROFLOXACIN HCL [Concomitant]
  13. CODEINE [Concomitant]

REACTIONS (1)
  - ERYTHEMA [None]
